FAERS Safety Report 6286619-4 (Version None)
Quarter: 2009Q3

REPORT INFORMATION
  Report Type: 
  Country: None (occurrence: None)
  Receive Date: 20090716
  Receipt Date: 20090512
  Transmission Date: 20100115
  Serious: Yes (Hospitalization)
  Sender: FDA-Public Use
  Company Number: 2009BI014508

PATIENT
  Age: 21 Year
  Sex: Female

DRUGS (5)
  1. AVONEX [Suspect]
     Indication: MULTIPLE SCLEROSIS
     Dosage: IM
     Route: 030
     Dates: end: 20090101
  2. BIRTH CONTROL [Concomitant]
  3. HORMONES [Concomitant]
  4. COPAXONE [Concomitant]
  5. PREV MEDS [Concomitant]

REACTIONS (3)
  - BLOOD PRESSURE INCREASED [None]
  - DRUG EFFECT INCREASED [None]
  - INFLUENZA LIKE ILLNESS [None]
